FAERS Safety Report 14799059 (Version 3)
Quarter: 2019Q1

REPORT INFORMATION
  Report Type: Report from Study
  Country: DE (occurrence: DE)
  Receive Date: 20180424
  Receipt Date: 20190224
  Transmission Date: 20190417
  Serious: Yes (Other)
  Sender: FDA-Public Use
  Company Number: DE-ROCHE-2110674

PATIENT
  Age: 56 Year
  Sex: Female
  Weight: 56 kg

DRUGS (6)
  1. DOCETAXEL. [Concomitant]
     Active Substance: DOCETAXEL
     Route: 065
     Dates: start: 20101201
  2. BEVACIZUMAB. [Suspect]
     Active Substance: BEVACIZUMAB
     Indication: BREAST CANCER
     Dosage: SUBSEQUENT DOSE ON 18/AUG/2010
     Route: 065
     Dates: start: 20100803, end: 20101201
  3. DOCETAXEL. [Concomitant]
     Active Substance: DOCETAXEL
     Route: 065
     Dates: start: 20101020
  4. DOCETAXEL. [Concomitant]
     Active Substance: DOCETAXEL
     Route: 065
     Dates: start: 20100908
  5. DOCETAXEL. [Concomitant]
     Active Substance: DOCETAXEL
     Indication: BREAST CANCER
     Route: 065
     Dates: start: 20100818
  6. CAPECITABINE. [Suspect]
     Active Substance: CAPECITABINE
     Indication: BREAST CANCER
     Route: 065

REACTIONS (1)
  - Ejection fraction decreased [Unknown]

NARRATIVE: CASE EVENT DATE: 20100803
